FAERS Safety Report 8143949-9 (Version None)
Quarter: 2012Q1

REPORT INFORMATION
  Report Type: 
  Country: None (occurrence: None)
  Receive Date: 20120103
  Receipt Date: 20111003
  Transmission Date: 20120608
  Serious: No
  Sender: FDA-Public Use
  Company Number: AE-2011-001996

PATIENT
  Age: 57 Year
  Sex: Male
  Weight: 83.9154 kg

DRUGS (5)
  1. PEGASYS [Concomitant]
  2. PRILOSEC [Concomitant]
  3. PEPCID [Concomitant]
  4. INCIVEK [Suspect]
     Dosage: 2250 MG (750 MG, 1 IN 8 HR), ORAL
     Route: 048
     Dates: start: 20110923
  5. RIVAVIRIN (RIBAVIRIN) [Concomitant]

REACTIONS (2)
  - ANORECTAL DISCOMFORT [None]
  - HAEMATOCHEZIA [None]
